FAERS Safety Report 6528198-X (Version None)
Quarter: 2009Q4

REPORT INFORMATION
  Report Type: 
  Country: None (occurrence: None)
  Receive Date: 20091231
  Receipt Date: 20091217
  Transmission Date: 20100525
  Serious: Yes (Congenital Anomaly)
  Sender: FDA-Public Use
  Company Number: 1000010953

PATIENT
  Sex: Male

DRUGS (3)
  1. ESCITALOPRAM OXALATE [Suspect]
     Dosage: 20 MG (20 MG, 1 IN 1 D), TRANSPLACENTAL
     Route: 064
     Dates: end: 20090901
  2. OLANZAPINE [Suspect]
     Dosage: 5 MG (5 MG, 1 IN 1 D), TRANSPLACENTAL
     Route: 064
     Dates: end: 20090901
  3. NICOTINE [Suspect]
     Dosage: TRANSPLACENTAL
     Route: 064
     Dates: end: 20090901

REACTIONS (6)
  - CARDIAC MURMUR [None]
  - CONGENITAL INGUINAL HERNIA [None]
  - EXOMPHALOS [None]
  - MATERNAL DRUGS AFFECTING FOETUS [None]
  - PATENT DUCTUS ARTERIOSUS [None]
  - PREMATURE BABY [None]
